FAERS Safety Report 18958666 (Version 1)
Quarter: 2021Q1

REPORT INFORMATION
  Report Type: Report from Study
  Country: CA (occurrence: CA)
  Receive Date: 20210302
  Receipt Date: 20210302
  Transmission Date: 20210420
  Serious: Yes (Other)
  Sender: FDA-Public Use
  Company Number: CA-SHIRE-CA202009987

PATIENT
  Age: 27 Year
  Sex: Female

DRUGS (13)
  1. CINRYZE [Suspect]
     Active Substance: HUMAN C1-ESTERASE INHIBITOR
     Dosage: UNK
     Dates: start: 20200301, end: 20200601
  2. CINRYZE [Suspect]
     Active Substance: HUMAN C1-ESTERASE INHIBITOR
     Indication: HEREDITARY ANGIOEDEMA
     Dosage: 1000 MILLIGRAM, OTHER(EVERY 4 DAYS)
     Route: 065
     Dates: start: 20200127, end: 2020
  3. CINRYZE [Suspect]
     Active Substance: HUMAN C1-ESTERASE INHIBITOR
     Indication: HEREDITARY ANGIOEDEMA
     Dosage: 1000 MILLIGRAM, OTHER(EVERY 4 DAYS)
     Route: 065
     Dates: start: 20200127, end: 2020
  4. FIRAZYR [Suspect]
     Active Substance: ICATIBANT ACETATE
     Indication: HEREDITARY ANGIOEDEMA
     Dosage: 30MG/3ML, AS REQ^D
     Route: 065
     Dates: start: 20190825
  5. TRANEXAMIC ACID. [Concomitant]
     Active Substance: TRANEXAMIC ACID
     Indication: HEREDITARY ANGIOEDEMA
     Dosage: 500 MILLIGRAM, 2 PILL TWICE DAILY
     Route: 065
     Dates: start: 20210211
  6. FIRAZYR [Suspect]
     Active Substance: ICATIBANT ACETATE
     Indication: HEREDITARY ANGIOEDEMA
     Dosage: 30MG/3ML, AS REQ^D
     Route: 065
     Dates: start: 20190825
  7. 643 (LANADELUMAB) [Suspect]
     Active Substance: LANADELUMAB
     Indication: HEREDITARY ANGIOEDEMA
     Dosage: 30MG/3ML, AS REQ^D
     Route: 058
     Dates: start: 20200423
  8. FIRAZYR [Suspect]
     Active Substance: ICATIBANT ACETATE
     Dosage: UNK
     Route: 065
     Dates: start: 20200120
  9. FIRAZYR [Suspect]
     Active Substance: ICATIBANT ACETATE
     Dosage: UNK
     Route: 065
     Dates: start: 20200120
  10. 643 (LANADELUMAB) [Suspect]
     Active Substance: LANADELUMAB
     Dosage: 30MG/3ML, AS REQ^D
     Route: 058
     Dates: start: 2020
  11. CINRYZE [Suspect]
     Active Substance: HUMAN C1-ESTERASE INHIBITOR
     Indication: HEREDITARY ANGIOEDEMA
     Dosage: 1000 MILLIGRAM, OTHER(EVERY 4 DAYS)
     Route: 065
     Dates: start: 20200127, end: 2020
  12. CINRYZE [Suspect]
     Active Substance: HUMAN C1-ESTERASE INHIBITOR
     Dosage: UNK
     Dates: start: 20200301, end: 20200601
  13. CINRYZE [Suspect]
     Active Substance: HUMAN C1-ESTERASE INHIBITOR
     Dosage: UNK
     Dates: start: 20200301, end: 20200601

REACTIONS (7)
  - Contusion [Unknown]
  - Therapeutic product effect decreased [Unknown]
  - Dysphagia [Recovering/Resolving]
  - Choking sensation [Recovering/Resolving]
  - Poor venous access [Unknown]
  - Hereditary angioedema [Recovered/Resolved]
  - Systemic lupus erythematosus [Unknown]

NARRATIVE: CASE EVENT DATE: 2020
